FAERS Safety Report 13575405 (Version 2)
Quarter: 2017Q3

REPORT INFORMATION
  Report Type: Spontaneous
  Country: US (occurrence: US)
  Receive Date: 20170524
  Receipt Date: 20170920
  Transmission Date: 20171127
  Serious: Yes (Other)
  Sender: FDA-Public Use
  Company Number: US-SUN PHARMACEUTICAL INDUSTRIES LTD-2017US-141254

PATIENT
  Age: 16 Year
  Sex: Male

DRUGS (4)
  1. TEMOZOLOMIDE. [Suspect]
     Active Substance: TEMOZOLOMIDE
     Indication: PARAGANGLION NEOPLASM
     Dosage: 200 MG/M2 DAILYX5 DAYS EVERY 21-28 DAYS FOR EIGHT CYCLES
     Route: 048
  2. ZOLEDRONIC ACID [Suspect]
     Active Substance: ZOLEDRONIC ACID
     Indication: PARAGANGLION NEOPLASM MALIGNANT
     Dosage: 4 MG/KG, MONTHLY X NINE DOSES.
     Route: 042
  3. 131I-META-IODOBENZYLGUANIDINE [Suspect]
     Active Substance: IOBENGUANE I-131
     Dosage: 3 MCI/KG AT 7TH MONTH POST DIAGNOSIS
     Route: 042
  4. 131I-META-IODOBENZYLGUANIDINE [Suspect]
     Active Substance: IOBENGUANE I-131
     Indication: PARAGANGLION NEOPLASM
     Dosage: 12 MCI/KG AT 4TH MONTH POST DIAGNOSIS
     Route: 042

REACTIONS (1)
  - Drug ineffective [Unknown]
